FAERS Safety Report 8531294-9 (Version None)
Quarter: 2012Q3

REPORT INFORMATION
  Report Type: 
  Country: None (occurrence: None)
  Receive Date: 20120710
  Receipt Date: 20120627
  Transmission Date: 20120928
  Serious: Yes (Life-Threatening, Hospitalization)
  Sender: FDA-Public Use
  Company Number: E2B-00000270

PATIENT
  Age: 80 Year
  Sex: Male
  Weight: 104.3273 kg

DRUGS (1)
  1. LISINOPRIL AND HYDROCHLOROTHIAZIDE [Suspect]
     Indication: HYPERTENSION
     Dosage: PER ORAL
     Route: 048
     Dates: start: 20111101, end: 20120626

REACTIONS (4)
  - SWOLLEN TONGUE [None]
  - OEDEMA MOUTH [None]
  - SWELLING FACE [None]
  - HYPOAESTHESIA ORAL [None]
